APPROVED DRUG PRODUCT: OXYBUTYNIN CHLORIDE
Active Ingredient: OXYBUTYNIN CHLORIDE
Strength: 5MG
Dosage Form/Route: TABLET;ORAL
Application: A070746 | Product #001
Applicant: USL PHARMA INC
Approved: Mar 10, 1988 | RLD: No | RS: No | Type: DISCN